FAERS Safety Report 10180090 (Version 1)
Quarter: 2014Q2

REPORT INFORMATION
  Report Type: Spontaneous
  Country: US (occurrence: US)
  Receive Date: 20140519
  Receipt Date: 20140519
  Transmission Date: 20141212
  Serious: No
  Sender: FDA-Public Use
  Company Number: US-AMGEN INC.-USASP2013075673

PATIENT
  Age: 64 Year
  Sex: Female

DRUGS (15)
  1. PROLIA [Suspect]
     Indication: OSTEOPOROSIS POSTMENOPAUSAL
     Dosage: UNK
     Route: 065
     Dates: start: 2011
  2. LEVOTHYROXINE [Concomitant]
     Dosage: 0.1 MG, QD
     Route: 065
  3. FLUOXETINE [Concomitant]
     Dosage: 10 MG, QD
     Route: 065
  4. NASONEX [Concomitant]
     Dosage: UNK UNK, QD
     Route: 065
  5. MUCINEX [Concomitant]
     Dosage: UNK UNK, QD
     Route: 065
  6. AMITRIPTYLINE [Concomitant]
     Dosage: 10 MG, QD
     Route: 065
  7. ALPRAZOLAM [Concomitant]
     Dosage: UNK UNK, AS NECESSARY
     Route: 065
  8. CALCIUM CITRATE W/ MAGNESIUM [Concomitant]
     Dosage: 500 MG, QD
     Route: 065
  9. CITRACAL                           /00751520/ [Concomitant]
     Dosage: 1200 MG, QD
     Route: 065
  10. MIRALAX                            /00754501/ [Concomitant]
     Dosage: UNK
     Route: 065
  11. IMITREX                            /01044801/ [Concomitant]
     Dosage: UNK UNK, AS NECESSARY
     Route: 065
  12. FISH OIL [Concomitant]
     Dosage: UNK
     Route: 065
  13. FERROUS GLUCONATE [Concomitant]
     Indication: RESTLESS LEGS SYNDROME
     Dosage: UNK
     Route: 065
  14. ANTACID                            /00018101/ [Concomitant]
     Dosage: UNK UNK, AS NECESSARY
     Route: 065
  15. PROBIOTIC                          /06395501/ [Concomitant]
     Dosage: UNK
     Route: 065

REACTIONS (16)
  - Localised infection [Unknown]
  - Sinusitis [Unknown]
  - Pruritus [Unknown]
  - Insomnia [Unknown]
  - Rash generalised [Not Recovered/Not Resolved]
  - Lichen planus [Unknown]
  - Stress [Unknown]
  - Rash macular [Not Recovered/Not Resolved]
  - Vulvovaginal rash [Not Recovered/Not Resolved]
  - Vaginal haemorrhage [Unknown]
  - Dysuria [Unknown]
  - Vulvovaginal swelling [Unknown]
  - Pain [Not Recovered/Not Resolved]
  - Headache [Not Recovered/Not Resolved]
  - Productive cough [Unknown]
  - Anal pruritus [Unknown]
